FAERS Safety Report 6005809-9 (Version None)
Quarter: 2008Q4

REPORT INFORMATION
  Report Type: 
  Country: None (occurrence: None)
  Receive Date: 20081217
  Receipt Date: 20081210
  Transmission Date: 20090506
  Serious: Yes (Other)
  Sender: FDA-Public Use
  Company Number: JP-BAYER-200813045BYL

PATIENT
  Age: 77 Year
  Sex: Male

DRUGS (4)
  1. CIPROXAN-I.V. [Suspect]
     Indication: INFECTION
     Dosage: TOTAL DAILY DOSE: 600 MG  UNIT DOSE: 300 MG
     Route: 042
  2. CARBENIN [Suspect]
     Indication: INFECTION
     Route: 042
  3. MEROPEN [Suspect]
     Indication: INFECTION
     Route: 042
  4. CIPROFLOXACIN HCL [Suspect]
     Indication: INFECTION
     Route: 042

REACTIONS (4)
  - ANAEMIA [None]
  - C-REACTIVE PROTEIN INCREASED [None]
  - HEPATIC FUNCTION ABNORMAL [None]
  - RENAL IMPAIRMENT [None]
